FAERS Safety Report 20258305 (Version 1)
Quarter: 2021Q4

REPORT INFORMATION
  Report Type: Spontaneous
  Country: US (occurrence: None)
  Receive Date: 20211229
  Receipt Date: 20211229
  Transmission Date: 20220303
  Serious: Yes (Death)
  Sender: FDA-Public Use
  Company Number: None

PATIENT
  Age: 68 Year
  Sex: Male

DRUGS (26)
  1. MYCOPHENOLIC ACID [Suspect]
     Active Substance: MYCOPHENOLIC ACID
     Indication: Liver transplant
     Dosage: FREQUENCY : TWICE A DAY;?
     Route: 048
     Dates: start: 20210714, end: 2021
  2. MYCOPHENOLIC ACID [Suspect]
     Active Substance: MYCOPHENOLIC ACID
  3. MYCOPHENOLIC ACID [Suspect]
     Active Substance: MYCOPHENOLIC ACID
  4. MYCOPHENOLIC ACID [Suspect]
     Active Substance: MYCOPHENOLIC ACID
  5. MYCOPHENOLIC ACID [Suspect]
     Active Substance: MYCOPHENOLIC ACID
     Dosage: FREQUENCY : TWICE A DAY;?
     Route: 048
     Dates: start: 20210714, end: 2021
  6. ALLOPURINOL [Concomitant]
     Active Substance: ALLOPURINOL
  7. ALPHA LIPOIC [Concomitant]
  8. ARGININE HYDROCHLORIDE [Concomitant]
     Active Substance: ARGININE HYDROCHLORIDE
  9. ASPIRIN CHW [Concomitant]
  10. COLCRYS [Concomitant]
  11. COENZYME Q10 [Concomitant]
     Active Substance: DIETARY SUPPLEMENT\UBIDECARENONE
  12. GABAPENTIN [Concomitant]
     Active Substance: GABAPENTIN
  13. HUMIRA [Concomitant]
     Active Substance: ADALIMUMAB
  14. HUMULIN R [Concomitant]
     Active Substance: INSULIN HUMAN
  15. LISINOPRIL [Concomitant]
     Active Substance: LISINOPRIL
  16. METHOTREXATE [Concomitant]
     Active Substance: METHOTREXATE
  17. METOPROLOL [Concomitant]
     Active Substance: METOPROLOL
  18. PAMELOR [Concomitant]
     Active Substance: NORTRIPTYLINE HYDROCHLORIDE
  19. PLAVIX [Concomitant]
     Active Substance: CLOPIDOGREL BISULFATE
  20. ROBAXIN [Concomitant]
     Active Substance: METHOCARBAMOL
  21. ROSUSVASTATIN [Concomitant]
  22. SINGULAIR [Concomitant]
     Active Substance: MONTELUKAST SODIUM
  23. SINGULAIR [Concomitant]
     Active Substance: MONTELUKAST SODIUM
  24. TACROLIMUS [Concomitant]
     Active Substance: TACROLIMUS
  25. TACROLIMUS A [Concomitant]
  26. VITAMIN B12 [Concomitant]
     Active Substance: CYANOCOBALAMIN

REACTIONS (1)
  - COVID-19 [None]

NARRATIVE: CASE EVENT DATE: 20211211
